FAERS Safety Report 16331619 (Version 1)
Quarter: 2019Q2

REPORT INFORMATION
  Report Type: Spontaneous
  Country: IT (occurrence: IT)
  Receive Date: 20190520
  Receipt Date: 20190520
  Transmission Date: 20190711
  Serious: Yes (Disabling)
  Sender: FDA-Public Use
  Company Number: IT-BAYER-2019-093037

PATIENT
  Age: 49 Year
  Sex: Female
  Weight: 63 kg

DRUGS (1)
  1. CIPROXIN [Suspect]
     Active Substance: CIPROFLOXACIN
     Indication: CYSTITIS
     Dosage: UNK

REACTIONS (2)
  - Vulvovaginal pain [Not Recovered/Not Resolved]
  - Dyspareunia [Not Recovered/Not Resolved]

NARRATIVE: CASE EVENT DATE: 20180801
